FAERS Safety Report 18272164 (Version 1)
Quarter: 2020Q3

REPORT INFORMATION
  Report Type: Spontaneous
  Country: GB (occurrence: GB)
  Receive Date: 20200916
  Receipt Date: 20200916
  Transmission Date: 20201103
  Serious: Yes (Life-Threatening, Hospitalization, Other)
  Sender: FDA-Public Use
  Company Number: GB-DEXPHARM-20200819

PATIENT
  Age: 48 Year
  Sex: Female

DRUGS (7)
  1. RIMSTAR [Suspect]
     Active Substance: ETHAMBUTOL\ISONIAZID\PYRAZINAMIDE\RIFAMYCIN
     Indication: TUBERCULOSIS
     Route: 048
     Dates: start: 20200619, end: 20200730
  2. DAPSONE. [Suspect]
     Active Substance: DAPSONE
     Indication: PNEUMOCYSTIS JIROVECII PNEUMONIA
     Route: 048
     Dates: start: 20200724, end: 20200730
  3. OMEPRAZOLE. [Suspect]
     Active Substance: OMEPRAZOLE
  4. PREGABALIN. [Suspect]
     Active Substance: PREGABALIN
     Indication: HIV PERIPHERAL NEUROPATHY
     Route: 048
     Dates: start: 20200526, end: 20200730
  5. RALTEGRAVIR. [Suspect]
     Active Substance: RALTEGRAVIR
     Indication: HIV INFECTION
     Route: 048
     Dates: start: 20200701, end: 20200730
  6. EMTRICITABINE AND TENOFOVIR [Suspect]
     Active Substance: EMTRICITABINE\TENOFOVIR
     Indication: HIV INFECTION
     Route: 048
     Dates: start: 20200701, end: 20200730
  7. PYRIDOXINE [Suspect]
     Active Substance: PYRIDOXINE
     Route: 048
     Dates: start: 20200619, end: 20200730

REACTIONS (1)
  - Hepatitis fulminant [Recovering/Resolving]

NARRATIVE: CASE EVENT DATE: 20200724
